FAERS Safety Report 7828561-0 (Version None)
Quarter: 2011Q4

REPORT INFORMATION
  Report Type: 
  Country: None (occurrence: None)
  Receive Date: 20111020
  Receipt Date: 20111020
  Transmission Date: 20120403
  Serious: Yes (Other)
  Sender: FDA-Public Use
  Company Number: None

PATIENT
  Age: 7 Year
  Sex: Male
  Weight: 22.679 kg

DRUGS (2)
  1. CONCERTA [Suspect]
     Indication: ATTENTION DEFICIT/HYPERACTIVITY DISORDER
     Dosage: ONE TABLET
     Route: 048
     Dates: start: 20101001, end: 20110301
  2. METADATE CD [Concomitant]
     Dosage: ONE CAPSULE
     Route: 048
     Dates: start: 20110302, end: 20111019

REACTIONS (2)
  - AFFECT LABILITY [None]
  - MIGRAINE [None]
